FAERS Safety Report 8776021 (Version 1)
Quarter: 2012Q4

REPORT INFORMATION
  Report Type: 
  Country: PL (occurrence: PL)
  Receive Date: 20120910
  Receipt Date: 20120910
  Transmission Date: 20130627
  Serious: Yes (Hospitalization)
  Sender: FDA-Public Use
  Company Number: PL-PFIZER INC-2012218667

PATIENT
  Age: 23 Year
  Sex: Female
  Weight: 70 kg

DRUGS (3)
  1. VENLAFAXINE HYDROCHLORIDE [Suspect]
     Dosage: UNK
     Dates: start: 20120704
  2. MIANSERIN [Suspect]
     Dosage: UNK
     Dates: start: 20120704
  3. TRAZODONE [Suspect]
     Dosage: UNK
     Dates: start: 20120704

REACTIONS (2)
  - Altered state of consciousness [Recovered/Resolved]
  - Hypotension [Recovered/Resolved]
